FAERS Safety Report 7668256-X (Version None)
Quarter: 2011Q3

REPORT INFORMATION
  Report Type: 
  Country: None (occurrence: None)
  Receive Date: 20110808
  Receipt Date: 20110427
  Transmission Date: 20111222
  Serious: No
  Sender: FDA-Public Use
  Company Number: US-BAYER-2011-037149

PATIENT
  Age: 41 Year
  Sex: Male

DRUGS (2)
  1. CYMBALTA [Concomitant]
  2. CIPROFLOXACIN HCL [Suspect]
     Indication: PRODUCT USED FOR UNKNOWN INDICATION
     Dosage: 500 MG, BID
     Route: 048
     Dates: start: 20110331, end: 20110401

REACTIONS (4)
  - WEIGHT DECREASED [None]
  - MUSCLE SPASMS [None]
  - PARAESTHESIA [None]
  - FEELING ABNORMAL [None]
